FAERS Safety Report 18673733 (Version 1)
Quarter: 2020Q4

REPORT INFORMATION
  Report Type: Spontaneous
  Country: VN (occurrence: VN)
  Receive Date: 20201229
  Receipt Date: 20201229
  Transmission Date: 20210114
  Serious: Yes (Death, Other)
  Sender: FDA-Public Use
  Company Number: VN-ASTRAZENECA-2020SF74145

PATIENT
  Age: 13345 Day
  Sex: Male

DRUGS (1)
  1. TAGRISSO [Suspect]
     Active Substance: OSIMERTINIB
     Indication: NON-SMALL CELL LUNG CANCER
     Route: 048

REACTIONS (3)
  - Asthenia [Unknown]
  - Fatigue [Fatal]
  - Pleural effusion [Fatal]

NARRATIVE: CASE EVENT DATE: 20201124
